FAERS Safety Report 21634748 (Version 4)
Quarter: 2023Q1

REPORT INFORMATION
  Report Type: Spontaneous
  Country: US (occurrence: US)
  Receive Date: 20221123
  Receipt Date: 20230309
  Transmission Date: 20230418
  Serious: Yes (Death, Life-Threatening, Disabling, Other)
  Sender: FDA-Public Use
  Company Number: US-BRISTOL-MYERS SQUIBB COMPANY-2022-142584

PATIENT
  Age: 81 Year
  Sex: Female

DRUGS (1)
  1. OPDIVO [Suspect]
     Active Substance: NIVOLUMAB
     Indication: Sarcoma metastatic
     Dosage: DOSE : 480 MG;     FREQ : EVERY 28 DAYS.
     Route: 042
     Dates: start: 20200727, end: 20221020

REACTIONS (3)
  - Malignant neoplasm progression [Fatal]
  - Fall [Unknown]
  - Off label use [Unknown]
